FAERS Safety Report 9486109 (Version 1)
Quarter: 2013Q3

REPORT INFORMATION
  Report Type: Spontaneous
  Country: FR (occurrence: FR)
  Receive Date: 20130829
  Receipt Date: 20130829
  Transmission Date: 20140515
  Serious: Yes (Hospitalization)
  Sender: FDA-Public Use
  Company Number: FR-JNJFOC-20130815548

PATIENT
  Age: 14 Year
  Sex: Female

DRUGS (9)
  1. REMICADE [Suspect]
     Indication: PRODUCT USED FOR UNKNOWN INDICATION
     Route: 042
  2. DEXCHLORPHENIRAMINE [Concomitant]
     Indication: PREMEDICATION
     Route: 065
  3. SOLU MEDROL [Concomitant]
     Indication: PREMEDICATION
     Route: 065
  4. VENTOLIN [Concomitant]
     Indication: ASTHMA
     Route: 065
  5. CORTANCYL [Concomitant]
     Dosage: MORNING
     Route: 065
  6. VEXOL [Concomitant]
     Dosage: ONE DROP IN EYE TWICE DAILY
     Route: 047
  7. STERDEX [Concomitant]
     Dosage: 1 APPLICATION IN EACH EYE IN THE EVENING
     Route: 047
  8. TOBRADEX [Concomitant]
     Dosage: ONE DROP THRICE DAILY
     Route: 047
  9. UVEDOSE [Concomitant]
     Route: 065

REACTIONS (6)
  - Anaphylactoid reaction [Recovered/Resolved]
  - Infusion related reaction [Recovered/Resolved]
  - Erythema [Recovered/Resolved]
  - Hypotension [Recovered/Resolved]
  - Dyspnoea [Recovered/Resolved]
  - Nausea [Recovered/Resolved]
